FAERS Safety Report 7038072-0 (Version None)
Quarter: 2010Q4

REPORT INFORMATION
  Report Type: 
  Country: None (occurrence: None)
  Receive Date: 20101011
  Receipt Date: 20101004
  Transmission Date: 20110411
  Serious: Yes (Hospitalization)
  Sender: FDA-Public Use
  Company Number: FR-PFIZER INC-2010126850

PATIENT
  Age: 82 Year
  Sex: Male

DRUGS (3)
  1. ATARAX [Suspect]
     Dosage: 25 MG, DAILY
     Route: 048
     Dates: start: 20100902, end: 20100915
  2. BRISTOPEN [Suspect]
     Dosage: 2 G, 6X/DAY
     Route: 042
     Dates: start: 20100903, end: 20100913
  3. RIFAMPICIN [Suspect]
     Dosage: 200 MG, 2X/DAY
     Route: 048
     Dates: start: 20100906, end: 20100915

REACTIONS (1)
  - THROMBOCYTOPENIA [None]
